FAERS Safety Report 18139289 (Version 2)
Quarter: 2020Q4

REPORT INFORMATION
  Report Type: Report from Study
  Country: US (occurrence: US)
  Receive Date: 20200812
  Receipt Date: 20201209
  Transmission Date: 20210113
  Serious: Yes (Hospitalization)
  Sender: FDA-Public Use
  Company Number: US-TAKEDA-2019TUS027856

PATIENT
  Age: 33 Year
  Sex: Female

DRUGS (10)
  1. PONATINIB [Suspect]
     Active Substance: PONATINIB
     Indication: CHRONIC MYELOID LEUKAEMIA
     Dosage: 45 MILLIGRAM, QD
     Route: 048
     Dates: start: 20190417
  2. PREDNISONE. [Concomitant]
     Active Substance: PREDNISONE
  3. CLARITIN [Concomitant]
     Active Substance: LORATADINE
     Dosage: UNK
  4. LEXAPRO [Concomitant]
     Active Substance: ESCITALOPRAM OXALATE
  5. PROGRAF [Concomitant]
     Active Substance: TACROLIMUS
  6. LYRICA [Concomitant]
     Active Substance: PREGABALIN
  7. PERCOCET                           /00446701/ [Concomitant]
     Active Substance: ACETAMINOPHEN\OXYCODONE HYDROCHLORIDE\OXYCODONE TEREPHTHALATE
  8. PROMETHAZINE HCL [Concomitant]
     Active Substance: PROMETHAZINE HYDROCHLORIDE
  9. FAMOTIDINE. [Concomitant]
     Active Substance: FAMOTIDINE
  10. METOPROLOL TARTRATE. [Concomitant]
     Active Substance: METOPROLOL TARTRATE

REACTIONS (11)
  - Arthralgia [Recovering/Resolving]
  - Rash [Unknown]
  - Headache [Unknown]
  - Adverse drug reaction [Unknown]
  - Myalgia [Unknown]
  - Blood pressure fluctuation [Unknown]
  - Pain in extremity [Unknown]
  - Fatigue [Unknown]
  - Palpitations [Recovering/Resolving]
  - Renal disorder [Unknown]
  - Hypertension [Recovering/Resolving]

NARRATIVE: CASE EVENT DATE: 201904
